FAERS Safety Report 12219056 (Version 1)
Quarter: 2016Q1

REPORT INFORMATION
  Report Type: Spontaneous
  Country: None (occurrence: FI)
  Receive Date: 20160329
  Receipt Date: 20160329
  Transmission Date: 20160526
  Serious: Yes (Other)
  Sender: FDA-Public Use
  Company Number: FI-POPULATION COUNCIL, INC.-1049900

PATIENT
  Age: 33 Year
  Sex: Female

DRUGS (1)
  1. JADELLE [Suspect]
     Active Substance: LEVONORGESTREL
     Indication: CONTRACEPTION
     Route: 058
     Dates: start: 20070830, end: 20120918

REACTIONS (3)
  - Evacuation of retained products of conception [None]
  - Device difficult to use [None]
  - Medication error [None]

NARRATIVE: CASE EVENT DATE: 20120918
